FAERS Safety Report 16550923 (Version 1)
Quarter: 2019Q3

REPORT INFORMATION
  Report Type: Spontaneous
  Country: US (occurrence: US)
  Receive Date: 20190710
  Receipt Date: 20190710
  Transmission Date: 20191004
  Serious: Yes (Other)
  Sender: FDA-Public Use
  Company Number: US-JNJFOC-20190703188

PATIENT
  Age: 38 Year
  Sex: Female
  Weight: 69.01 kg

DRUGS (2)
  1. PEPCID [Concomitant]
     Active Substance: FAMOTIDINE
     Indication: PRODUCT USED FOR UNKNOWN INDICATION
     Route: 065
  2. NEUTROGENA RAPID CLEAR STUBBORN ACNE SPOT [Suspect]
     Active Substance: BENZOYL PEROXIDE
     Indication: ACNE
     Dosage: SMALL AMOUNT
     Route: 061
     Dates: start: 20190619

REACTIONS (1)
  - Application site reaction [Recovering/Resolving]

NARRATIVE: CASE EVENT DATE: 20190619
